FAERS Safety Report 21297191 (Version 3)
Quarter: 2022Q3

REPORT INFORMATION
  Report Type: Spontaneous
  Country: CO (occurrence: CO)
  Receive Date: 20220906
  Receipt Date: 20220913
  Transmission Date: 20221026
  Serious: Yes (Hospitalization, Other)
  Sender: FDA-Public Use
  Company Number: CO-MYLANLABS-2022M1090792

PATIENT
  Age: 8 Year
  Sex: Male
  Weight: 16 kg

DRUGS (9)
  1. CYSTAGON [Suspect]
     Active Substance: CYSTEAMINE BITARTRATE
     Indication: Cystinosis
     Dosage: 300 MILLIGRAM, Q6H
     Route: 048
     Dates: start: 20140402
  2. KID CALCIUM COMPLETE [Concomitant]
     Dosage: UNK UNK, BID (5 CC EVERY 12 HOURS)
     Route: 065
  3. NUCTIS D [Concomitant]
     Dosage: 7 GTT DROPS, BID (7 DROPS EVERY 12 HOURS)
     Route: 065
  4. CALCITRIOL [Concomitant]
     Active Substance: CALCITRIOL
     Dosage: 4 DOSAGE FORM, QD (4 TABLETS OF 0.25 MICROGRAM (MCG) EVERY 24 HOURS)
     Route: 065
  5. POTASSIUM CHLORIDE [Concomitant]
     Active Substance: POTASSIUM CHLORIDE
     Dosage: 5 MILLILITER, BID (5 MILLILITER (ML) AM AND 5 ML PM (HALF VIAL) EVERY 12 HOURS)
     Route: 065
  6. SODIUM BICARBONATE [Concomitant]
     Active Substance: SODIUM BICARBONATE
     Dosage: UNK UNK, Q8H (10 CC EVERY 8 HOURS)
     Route: 065
  7. FERROUS SULFATE [Concomitant]
     Active Substance: FERROUS SULFATE
     Dosage: 10 GTT DROPS, BID (10 DROPS EVERY 12 HOURS)
     Route: 065
  8. ASCORBIC ACID [Concomitant]
     Active Substance: ASCORBIC ACID
     Dosage: 10 GTT DROPS, QD (10 DROPS EVERY 24 HOURS)
     Route: 065
  9. CYSTADROPS [Concomitant]
     Active Substance: CYSTEAMINE HYDROCHLORIDE
     Dosage: 1 GTT DROPS, Q6H (1 DROP EACH EYE EVERY 6 HOURS)
     Route: 065
     Dates: start: 20160917

REACTIONS (4)
  - Adenovirus infection [Recovered/Resolved]
  - Electrolyte imbalance [Not Recovered/Not Resolved]
  - Seizure [Not Recovered/Not Resolved]
  - Renal failure [Unknown]

NARRATIVE: CASE EVENT DATE: 20220101
